FAERS Safety Report 17033979 (Version 6)
Quarter: 2019Q4

REPORT INFORMATION
  Report Type: Spontaneous
  Country: US (occurrence: US)
  Receive Date: 20191114
  Receipt Date: 20191217
  Transmission Date: 20200122
  Serious: Yes (Hospitalization)
  Sender: FDA-Public Use
  Company Number: US-ACTELION-A-NJ2019-197472

PATIENT
  Age: 70 Year
  Sex: Female
  Weight: 59.41 kg

DRUGS (8)
  1. VELETRI [Suspect]
     Active Substance: EPOPROSTENOL
     Indication: PULMONARY ARTERIAL HYPERTENSION
     Dosage: 16 NG/KG, PER MIN
     Route: 042
  2. VELETRI [Suspect]
     Active Substance: EPOPROSTENOL
     Dosage: 14 NG/KG, PER MIN
     Route: 042
  3. VELETRI [Suspect]
     Active Substance: EPOPROSTENOL
     Dosage: 12 NG/KG, PER MIN
     Route: 042
  4. VELETRI [Suspect]
     Active Substance: EPOPROSTENOL
     Dosage: 18 NG/KG, PER MIN
     Route: 042
  5. OPSUMIT [Suspect]
     Active Substance: MACITENTAN
     Indication: PULMONARY ARTERIAL HYPERTENSION
     Dosage: 10 MG, QD
     Route: 048
     Dates: start: 20190806
  6. VELETRI [Suspect]
     Active Substance: EPOPROSTENOL
     Dosage: 4 NG/KG, PER MIN
     Route: 042
  7. SILDENAFIL CITRATE. [Concomitant]
     Active Substance: SILDENAFIL CITRATE
  8. VELETRI [Suspect]
     Active Substance: EPOPROSTENOL
     Dosage: 10 NG/KG, PER MIN
     Route: 042

REACTIONS (16)
  - Malaise [Unknown]
  - Eating disorder [Unknown]
  - Diarrhoea [Unknown]
  - Back pain [Unknown]
  - Decreased appetite [Unknown]
  - Muscle spasms [Unknown]
  - Weight decreased [Unknown]
  - Pain in jaw [Unknown]
  - Nausea [Unknown]
  - Terminal state [Unknown]
  - Dyspnoea [Unknown]
  - Pain in extremity [Unknown]
  - Therapy non-responder [Unknown]
  - Abdominal pain upper [Unknown]
  - Headache [Unknown]
  - Fatigue [Unknown]

NARRATIVE: CASE EVENT DATE: 20191023
